FAERS Safety Report 6563922-1 (Version None)
Quarter: 2010Q1

REPORT INFORMATION
  Report Type: 
  Country: None (occurrence: None)
  Receive Date: 20100131
  Receipt Date: 20100119
  Transmission Date: 20100710
  Serious: Yes (Life-Threatening, Hospitalization)
  Sender: FDA-Public Use
  Company Number: SE-JNJFOC-20100108082

PATIENT
  Age: 51 Year
  Sex: Female

DRUGS (5)
  1. REMICADE [Suspect]
     Indication: PYODERMA GANGRENOSUM
     Route: 042
  2. REMICADE [Suspect]
     Dosage: 2ND INFUSION
     Route: 042
  3. PREDNISOLONE [Concomitant]
  4. PREDNISOLONE [Concomitant]
  5. PREDNISOLONE [Concomitant]

REACTIONS (12)
  - CONFUSIONAL STATE [None]
  - CYANOSIS [None]
  - HALLUCINATION, AUDITORY [None]
  - HEARING IMPAIRED [None]
  - HYPOTENSION [None]
  - INFUSION RELATED REACTION [None]
  - ISCHAEMIA [None]
  - LIVEDO RETICULARIS [None]
  - PERIPHERAL COLDNESS [None]
  - PERONEAL NERVE PALSY [None]
  - PYODERMA GANGRENOSUM [None]
  - SEPSIS [None]
